FAERS Safety Report 23191531 (Version 2)
Quarter: 2024Q1

REPORT INFORMATION
  Report Type: Spontaneous
  Country: AR (occurrence: AR)
  Receive Date: 20231116
  Receipt Date: 20240112
  Transmission Date: 20240409
  Serious: No
  Sender: FDA-Public Use
  Company Number: AR-PFIZER INC-PV202300182381

PATIENT
  Age: 8 Year
  Sex: Male

DRUGS (1)
  1. GENOTROPIN [Suspect]
     Active Substance: SOMATROPIN
     Dosage: 0.6 TO 1 MG, 7 TIMES PER WEEK
     Dates: start: 20231011, end: 20231102

REACTIONS (3)
  - Drug dose omission by device [Not Recovered/Not Resolved]
  - Device use issue [Not Recovered/Not Resolved]
  - Device leakage [Not Recovered/Not Resolved]

NARRATIVE: CASE EVENT DATE: 20231102
